FAERS Safety Report 6486927-8 (Version None)
Quarter: 2009Q4

REPORT INFORMATION
  Report Type: 
  Country: None (occurrence: None)
  Receive Date: 20091210
  Receipt Date: 20091202
  Transmission Date: 20100525
  Serious: Yes (Other)
  Sender: FDA-Public Use
  Company Number: CHPA2009AR22977

PATIENT
  Age: 61 Year
  Sex: Male

DRUGS (1)
  1. NICOTINELL GUM (NCH) [Suspect]
     Indication: SMOKING CESSATION THERAPY
     Dosage: 2 MG, PRN, 2 OR 3 GUMS
     Dates: start: 20091101, end: 20091201

REACTIONS (2)
  - TONGUE DISORDER [None]
  - TONGUE HAEMORRHAGE [None]
